FAERS Safety Report 11569959 (Version 3)
Quarter: 2015Q4

REPORT INFORMATION
  Report Type: Spontaneous
  Country: BR (occurrence: BR)
  Receive Date: 20150929
  Receipt Date: 20151015
  Transmission Date: 20160304
  Serious: Yes (Other)
  Sender: FDA-Public Use
  Company Number: BR-SA-2015SA148280

PATIENT
  Age: 53 Year
  Sex: Male

DRUGS (2)
  1. METFORMIN [Concomitant]
     Active Substance: METFORMIN HYDROCHLORIDE
     Indication: DIABETES MELLITUS
  2. LANTUS [Suspect]
     Active Substance: INSULIN GLARGINE
     Indication: DIABETES MELLITUS
     Dosage: START DATE:LESS THAN 4 YEARS AGO
     Route: 065

REACTIONS (9)
  - Inappropriate schedule of drug administration [Unknown]
  - Diet noncompliance [Unknown]
  - Grip strength decreased [Unknown]
  - Blood glucose increased [Unknown]
  - Blood glucose decreased [Unknown]
  - Asthenia [Unknown]
  - Syncope [Unknown]
  - Tremor [Unknown]
  - Body mass index decreased [Unknown]
